FAERS Safety Report 4438758-8 (Version None)
Quarter: 2004Q3

REPORT INFORMATION
  Report Type: 
  Country: None (occurrence: None)
  Receive Date: 20040830
  Receipt Date: 20040816
  Transmission Date: 20050211
  Serious: Yes (Hospitalization, Other)
  Sender: FDA-Public Use
  Company Number: 04-286-0768-1

PATIENT
  Age: 70 Year
  Sex: Female
  Weight: 110 kg

DRUGS (1)
  1. DAUNORUBICIN, UNKNOWN STRENGTH, BEN VENUE LABS [Suspect]
     Indication: ACUTE MYELOID LEUKAEMIA
     Dosage: 45 MG/M2 IV, DAYS 1-3
     Dates: start: 20030828

REACTIONS (3)
  - CHONDROCALCINOSIS PYROPHOSPHATE [None]
  - HYPOKALAEMIA [None]
  - PLATELET COUNT DECREASED [None]
